FAERS Safety Report 15387454 (Version 1)
Quarter: 2018Q3

REPORT INFORMATION
  Report Type: Report from Study
  Country: US (occurrence: US)
  Receive Date: 20180914
  Receipt Date: 20180914
  Transmission Date: 20181010
  Serious: Yes (Other)
  Sender: FDA-Public Use
  Company Number: US-TEVA-2018-US-954580

PATIENT
  Age: 56 Year
  Sex: Female

DRUGS (10)
  1. BACLOFEN. [Concomitant]
     Active Substance: BACLOFEN
  2. FISH OIL [Concomitant]
     Active Substance: FISH OIL
  3. FOLIC ACID. [Concomitant]
     Active Substance: FOLIC ACID
  4. LYRICA [Concomitant]
     Active Substance: PREGABALIN
  5. ASPIRIN. [Concomitant]
     Active Substance: ASPIRIN
  6. CALCIUM/D3 [Concomitant]
     Active Substance: CALCIUM\CHOLECALCIFEROL
  7. LEVETIRACETAM. [Concomitant]
     Active Substance: LEVETIRACETAM
  8. MODAFINIL. [Concomitant]
     Active Substance: MODAFINIL
  9. MYRBETRIQ [Concomitant]
     Active Substance: MIRABEGRON
  10. COPAXONE [Suspect]
     Active Substance: GLATIRAMER ACETATE
     Indication: MULTIPLE SCLEROSIS
     Dosage: FORMULATION: PREFILLED SYRINGE
     Route: 058
     Dates: start: 20180222

REACTIONS (6)
  - Injection site bruising [Not Recovered/Not Resolved]
  - Injection site pain [Not Recovered/Not Resolved]
  - Injection site mass [Not Recovered/Not Resolved]
  - Wrong technique in product usage process [Not Recovered/Not Resolved]
  - Cognitive disorder [Not Recovered/Not Resolved]
  - Injection site necrosis [Not Recovered/Not Resolved]
